FAERS Safety Report 13331041 (Version 1)
Quarter: 2017Q1

REPORT INFORMATION
  Report Type: Spontaneous
  Country: US (occurrence: US)
  Receive Date: 20170313
  Receipt Date: 20170313
  Transmission Date: 20170428
  Serious: Yes (Life-Threatening, Disabling)
  Sender: FDA-Public Use
  Company Number: None

PATIENT
  Age: 55 Year
  Sex: Female
  Weight: 54 kg

DRUGS (4)
  1. LEVAQUIN [Suspect]
     Active Substance: LEVOFLOXACIN
     Indication: CYSTITIS
     Dosage: ?          QUANTITY:40 CAPSULE(S);?4 TIMES A DAY
     Route: 048
     Dates: start: 20040207, end: 20040217
  2. VICADON [Concomitant]
  3. MULIT VITAMINS [Concomitant]
  4. ATIVAN [Concomitant]
     Active Substance: LORAZEPAM

REACTIONS (10)
  - Neuropathy peripheral [None]
  - Pain [None]
  - Blood pressure decreased [None]
  - Mental disorder [None]
  - Asthma [None]
  - Loss of employment [None]
  - Headache [None]
  - Panic reaction [None]
  - Nightmare [None]
  - Cognitive disorder [None]

NARRATIVE: CASE EVENT DATE: 20040207
